FAERS Safety Report 5028389-3 (Version None)
Quarter: 2006Q2

REPORT INFORMATION
  Report Type: 
  Country: None (occurrence: None)
  Receive Date: 20060613
  Receipt Date: 20060530
  Transmission Date: 20061013
  Serious: Yes (Hospitalization)
  Sender: FDA-Public Use
  Company Number: 2006SP002245

PATIENT
  Age: 87 Year
  Sex: Female

DRUGS (8)
  1. XOPENEX [Suspect]
     Indication: BRONCHIECTASIS
     Dosage: SEE IMAGE
     Route: 055
     Dates: start: 20060520, end: 20060520
  2. XOPENEX [Suspect]
     Indication: BRONCHIECTASIS
     Dosage: SEE IMAGE
     Route: 055
     Dates: start: 20060522, end: 20060522
  3. XOPENEX [Suspect]
     Indication: BRONCHIECTASIS
     Dosage: SEE IMAGE
     Route: 055
     Dates: start: 20060526, end: 20060526
  4. XOPENEX [Suspect]
     Indication: BRONCHIECTASIS
     Dosage: SEE IMAGE
     Route: 055
     Dates: start: 20060527, end: 20060529
  5. XOPENEX [Suspect]
     Indication: BRONCHIECTASIS
     Dosage: SEE IMAGE
     Route: 055
     Dates: start: 20060530
  6. MIACALCIN [Concomitant]
  7. MUCINEX [Concomitant]
  8. OXYGEN [Concomitant]

REACTIONS (7)
  - ANOREXIA [None]
  - BILE DUCT STONE [None]
  - COUGH [None]
  - DYSPNOEA [None]
  - IRRITABILITY [None]
  - NASAL CONGESTION [None]
  - SALIVARY HYPERSECRETION [None]
